FAERS Safety Report 19996262 (Version 1)
Quarter: 2021Q4

REPORT INFORMATION
  Report Type: Spontaneous
  Country: US (occurrence: US)
  Receive Date: 20211026
  Receipt Date: 20211026
  Transmission Date: 20220303
  Serious: Yes (Other)
  Sender: FDA-Public Use
  Company Number: ALC2021US005746

PATIENT
  Age: 72 Year
  Sex: Male

DRUGS (10)
  1. BSS [Suspect]
     Active Substance: CALCIUM CHLORIDE\MAGNESIUM CHLORIDE\POTASSIUM CHLORIDE\SODIUM ACETATE\SODIUM CHLORIDE\SODIUM CITRATE
     Indication: Cataract operation
     Dosage: UNK
     Route: 065
     Dates: start: 20210929
  2. POVIDONE-IODINE [Suspect]
     Active Substance: POVIDONE-IODINE
     Dosage: UNK
     Route: 065
     Dates: start: 20210929
  3. LIDOCAINE [Suspect]
     Active Substance: LIDOCAINE
     Indication: Product used for unknown indication
     Dosage: UNK
     Route: 065
     Dates: start: 20210929
  4. OFLOXACIN [Suspect]
     Active Substance: OFLOXACIN
     Indication: Preoperative care
     Dosage: QID X3 DAYS (PRE-OP) (START 3 DAYS BEFORE SURGERY)
     Route: 065
     Dates: start: 20210926
  5. OFLOXACIN [Suspect]
     Active Substance: OFLOXACIN
     Indication: Postoperative care
     Dosage: QID X 2 WEEKS (POST-OP)
     Route: 065
  6. ILEVRO [Suspect]
     Active Substance: NEPAFENAC
     Indication: Postoperative care
     Dosage: QD X 4 WEEKS (POST-OP MEDICATION)
     Route: 065
  7. ILEVRO [Suspect]
     Active Substance: NEPAFENAC
     Indication: Preoperative care
     Dosage: START 3 DAYS BEFORE SURGERY
     Dates: start: 20210926
  8. DUREZOL [Suspect]
     Active Substance: DIFLUPREDNATE
     Indication: Postoperative care
     Dosage: BID X 2 WEEKS
     Route: 065
  9. DUREZOL [Suspect]
     Active Substance: DIFLUPREDNATE
     Dosage: QD X 2 WEEKS
     Route: 065
  10. VANCOMYCIN [Concomitant]
     Active Substance: VANCOMYCIN
     Indication: Product used for unknown indication
     Dosage: 0.2 CC ADDED TO THE BSS BAG
     Route: 065

REACTIONS (2)
  - Toxic anterior segment syndrome [Recovering/Resolving]
  - Off label use [Recovering/Resolving]

NARRATIVE: CASE EVENT DATE: 20210930
